FAERS Safety Report 9163860 (Version 2)
Quarter: 2013Q1

REPORT INFORMATION
  Report Type: Spontaneous
  Country: US (occurrence: US)
  Receive Date: 20130314
  Receipt Date: 20130320
  Transmission Date: 20140127
  Serious: Yes (Hospitalization)
  Sender: FDA-Public Use
  Company Number: US-BAXTER-2013BAX009176

PATIENT
  Sex: Female

DRUGS (3)
  1. DIANEAL LOW CALCIUM [Suspect]
     Indication: PERITONEAL DIALYSIS
     Route: 033
     Dates: end: 20130310
  2. KEPPRA [Concomitant]
     Indication: CONVULSION
     Route: 048
  3. DEPAKOTE [Concomitant]
     Indication: CONVULSION
     Route: 048

REACTIONS (4)
  - Convulsion [Recovered/Resolved]
  - Depressed level of consciousness [Recovered/Resolved]
  - Peritonitis [Recovering/Resolving]
  - Peritoneal dialysis complication [Unknown]
